FAERS Safety Report 10313335 (Version 1)
Quarter: 2014Q3

REPORT INFORMATION
  Report Type: Spontaneous
  Country: US (occurrence: None)
  Receive Date: 20140716
  Receipt Date: 20140716
  Transmission Date: 20150326
  Serious: Yes (Death)
  Sender: FDA-Public Use
  Company Number: US-H14001-14-00190

PATIENT
  Age: 85 Year
  Sex: Male

DRUGS (2)
  1. HEPARIN [Suspect]
     Active Substance: HEPARIN SODIUM
     Indication: CAROTID ARTERY OCCLUSION
  2. COUMADIN (WARFARIN SODIUM) (UNKNOWN) (WARFARIN SODIUM) [Concomitant]

REACTIONS (3)
  - Subdural haematoma [None]
  - Condition aggravated [None]
  - Brain herniation [None]
